FAERS Safety Report 5056833-4 (Version None)
Quarter: 2006Q2

REPORT INFORMATION
  Report Type: 
  Country: None (occurrence: None)
  Receive Date: 20060620
  Receipt Date: 20051028
  Transmission Date: 20061013
  Serious: Yes (Hospitalization)
  Sender: FDA-Public Use
  Company Number: 05US000721

PATIENT
  Age: 67 Year
  Sex: Female

DRUGS (3)
  1. LITHOBID [Suspect]
     Indication: BIPOLAR I DISORDER
     Dosage: 600 MG, BID, ORAL
     Route: 048
  2. SYNTHROID [Concomitant]
  3. ARTANE [Concomitant]

REACTIONS (4)
  - IRRITABILITY [None]
  - PARANOIA [None]
  - SLEEP DISORDER [None]
  - THERAPEUTIC AGENT TOXICITY [None]
